FAERS Safety Report 7905338-9 (Version None)
Quarter: 2011Q4

REPORT INFORMATION
  Report Type: 
  Country: None (occurrence: None)
  Receive Date: 20111109
  Receipt Date: 20111101
  Transmission Date: 20120403
  Serious: Yes (Hospitalization)
  Sender: FDA-Public Use
  Company Number: KR-ASTRAZENECA-2011SE66201

PATIENT
  Age: 20925 Day
  Sex: Female

DRUGS (9)
  1. OMP [Concomitant]
     Route: 048
     Dates: start: 20050401, end: 20050404
  2. DEPAKENE [Concomitant]
     Route: 048
     Dates: start: 20050120
  3. ROXAN [Concomitant]
     Route: 048
     Dates: start: 20050314
  4. GANATON [Concomitant]
     Route: 048
     Dates: start: 20050314
  5. CRESTOR [Suspect]
     Route: 048
     Dates: start: 20050119
  6. TENORMIN [Concomitant]
     Route: 048
     Dates: start: 20050226
  7. ACTONEL [Concomitant]
     Route: 048
     Dates: start: 20040624
  8. GASTREX GRANULES [Concomitant]
     Route: 048
     Dates: start: 20050314
  9. GELMA SYSP [Concomitant]
     Route: 048
     Dates: start: 20050314

REACTIONS (3)
  - NAUSEA [None]
  - DYSPEPSIA [None]
  - POLYP [None]
